FAERS Safety Report 9231688 (Version 2)
Quarter: 2013Q2

REPORT INFORMATION
  Report Type: Spontaneous
  Country: NZ (occurrence: NZ)
  Receive Date: 20130415
  Receipt Date: 20130419
  Transmission Date: 20140414
  Serious: Yes (Disabling)
  Sender: FDA-Public Use
  Company Number: NZ-ROCHE-1213993

PATIENT
  Age: 73 Year
  Sex: Female

DRUGS (3)
  1. ACTILYSE [Suspect]
     Indication: RETINAL HAEMORRHAGE
     Dosage: .1 ML, SINGLE, PNEUMATIC DISPLACEMENT PROCEDURE (0.3 ML OF 100% SF6 GAS WITH 0.1 ML OF 250 MCG/ML T-
     Route: 050
  2. ACTILYSE [Suspect]
     Indication: OFF LABEL USE
  3. SULFUR HEXAFLUORIDE GAS [Concomitant]
     Indication: RETINAL HAEMORRHAGE
     Dosage: .3 ML, SINGLE, PNEUMATIC DISPLACEMENT PROCEDURE 0.3ML OF 100% SF6 GAS WITH 0.1 ML OF 250 MCG/ML T-PA
     Route: 050

REACTIONS (3)
  - Endophthalmitis [Recovered/Resolved with Sequelae]
  - Streptococcal infection [Recovered/Resolved with Sequelae]
  - Pain [Unknown]
